FAERS Safety Report 4622026-5 (Version None)
Quarter: 2005Q1

REPORT INFORMATION
  Report Type: 
  Country: None (occurrence: None)
  Receive Date: 20050328
  Receipt Date: 20050311
  Transmission Date: 20050727
  Serious: Yes (Other)
  Sender: FDA-Public Use
  Company Number: 2005BI000210

PATIENT
  Age: 32 Year
  Sex: Female

DRUGS (2)
  1. AVONEX [Suspect]
     Indication: MULTIPLE SCLEROSIS
     Dosage: IM
     Route: 030
     Dates: start: 20030901, end: 20031201
  2. COPAXONE [Concomitant]

REACTIONS (3)
  - ANAPHYLACTIC SHOCK [None]
  - CARDIAC ARREST [None]
  - DYSPNOEA [None]
